FAERS Safety Report 7553380-2 (Version None)
Quarter: 2011Q2

REPORT INFORMATION
  Report Type: 
  Country: None (occurrence: None)
  Receive Date: 20110617
  Receipt Date: 20110422
  Transmission Date: 20111010
  Serious: No
  Sender: FDA-Public Use
  Company Number: A0924237A

PATIENT
  Age: 30 Year
  Sex: Female

DRUGS (7)
  1. LOPRESSOR [Concomitant]
  2. PROMACTA [Suspect]
     Indication: IDIOPATHIC THROMBOCYTOPENIC PURPURA
     Dosage: 100MG PER DAY
     Route: 048
     Dates: start: 20110304
  3. CELEXA [Concomitant]
  4. PRILOSEC [Concomitant]
  5. VITAMIN D [Concomitant]
  6. FOLIC ACID [Concomitant]
  7. IRON TABLETS [Concomitant]

REACTIONS (6)
  - MYALGIA [None]
  - NAUSEA [None]
  - HEADACHE [None]
  - PAIN [None]
  - INFLUENZA LIKE ILLNESS [None]
  - DIZZINESS [None]
